FAERS Safety Report 23480305 (Version 1)
Quarter: 2024Q1

REPORT INFORMATION
  Report Type: Spontaneous
  Country: US (occurrence: US)
  Receive Date: 20240205
  Receipt Date: 20240205
  Transmission Date: 20240410
  Serious: Yes (Other)
  Sender: FDA-Public Use
  Company Number: US-ORG100014127-2023000623

PATIENT
  Age: 34 Year
  Sex: Female

DRUGS (9)
  1. MITOTANE [Suspect]
     Active Substance: MITOTANE
     Indication: Metastases to liver
     Route: 048
  2. METYRAPONE [Concomitant]
     Active Substance: METYRAPONE
     Indication: Metastases to liver
  3. SULFAMETHOXAZOLE\TRIMETHOPRIM [Concomitant]
     Active Substance: SULFAMETHOXAZOLE\TRIMETHOPRIM
     Indication: Antifungal prophylaxis
  4. HEPARIN [Concomitant]
     Active Substance: HEPARIN SODIUM
     Indication: Thrombosis prophylaxis
  5. SPIRONOLACTONE [Concomitant]
     Active Substance: SPIRONOLACTONE
     Indication: Hypertension
  6. MIFEPRISTONE [Concomitant]
     Active Substance: MIFEPRISTONE
     Indication: Metastases to liver
  7. DOXORUBICIN [Concomitant]
     Active Substance: DOXORUBICIN
     Indication: Metastases to liver
  8. ETOPOSIDE [Concomitant]
     Active Substance: ETOPOSIDE
     Indication: Metastases to liver
  9. CISPLATIN [Concomitant]
     Active Substance: CISPLATIN
     Indication: Metastases to liver

REACTIONS (1)
  - Primary adrenal insufficiency [Recovered/Resolved]
